FAERS Safety Report 12419285 (Version 1)
Quarter: 2016Q2

REPORT INFORMATION
  Report Type: Spontaneous
  Country: US (occurrence: None)
  Receive Date: 20160527
  Receipt Date: 20160527
  Transmission Date: 20160815
  Serious: Yes (Other)
  Sender: FDA-Public Use
  Company Number: None

PATIENT
  Age: 65 Year
  Sex: Female

DRUGS (1)
  1. HYCAMTIN [Suspect]
     Active Substance: TOPOTECAN HYDROCHLORIDE

REACTIONS (5)
  - Cough [None]
  - Gastric disorder [None]
  - Anal incontinence [None]
  - Abdominal distension [None]
  - Urinary incontinence [None]

NARRATIVE: CASE EVENT DATE: 20160518
